FAERS Safety Report 8796898 (Version 3)
Quarter: 2013Q2

REPORT INFORMATION
  Report Type: Report from Study
  Country: JP (occurrence: JP)
  Receive Date: 20120919
  Receipt Date: 20130423
  Transmission Date: 20140414
  Serious: Yes (Hospitalization)
  Sender: FDA-Public Use
  Company Number: JP-VERTEX PHARMACEUTICAL INC.-AE-2012-007475

PATIENT
  Age: 65 Year
  Sex: Female

DRUGS (7)
  1. VX-950 (TELAPREVIR) [Suspect]
     Indication: CHRONIC HEPATITIS C
     Dosage: 2250 MG, QD
     Route: 048
     Dates: start: 20120405, end: 20120413
  2. VX-950 (TELAPREVIR) [Suspect]
     Dosage: 1500 MG, QD
     Route: 048
     Dates: start: 20120414, end: 20120510
  3. REBETOL [Suspect]
     Indication: CHRONIC HEPATITIS C
     Dosage: 600 MG, QD
     Route: 048
     Dates: start: 20120405, end: 20120510
  4. PEGINTRON [Suspect]
     Indication: CHRONIC HEPATITIS C
     Dosage: 1.5 ?G/KG, QW
     Route: 058
     Dates: start: 20120405, end: 20120510
  5. MUCOSTA [Concomitant]
     Dosage: 100 MG, PRN
     Route: 048
     Dates: start: 20120405, end: 20120415
  6. URSO [Concomitant]
     Dosage: 600 MG, QD
     Route: 048
     Dates: start: 20120830
  7. CALONAL [Concomitant]
     Dosage: 500 MG, PRN
     Route: 048
     Dates: end: 20120524

REACTIONS (2)
  - Blood creatinine increased [Recovered/Resolved]
  - Blood uric acid increased [Recovered/Resolved]
